FAERS Safety Report 8053068-8 (Version None)
Quarter: 2012Q1

REPORT INFORMATION
  Report Type: 
  Country: None (occurrence: None)
  Receive Date: 20120118
  Receipt Date: 20120110
  Transmission Date: 20120608
  Serious: Yes (Hospitalization)
  Sender: FDA-Public Use
  Company Number: US-BRISTOL-MYERS SQUIBB COMPANY-16340994

PATIENT
  Age: 51 Year
  Sex: Female
  Weight: 116 kg

DRUGS (3)
  1. METOPIRONE [Suspect]
  2. TORISEL [Suspect]
     Indication: NEOPLASM
     Dosage: LAST DOSE:01NOV2011
     Route: 042
     Dates: start: 20111003
  3. IXEMPRA KIT [Suspect]
     Indication: NEOPLASM
     Dosage: LAST DOSE:24OCT2011
     Route: 042
     Dates: start: 20111003

REACTIONS (7)
  - PULSELESS ELECTRICAL ACTIVITY [None]
  - DIARRHOEA [None]
  - ADRENAL INSUFFICIENCY [None]
  - HYPOXIA [None]
  - LACTIC ACIDOSIS [None]
  - HYPOTENSION [None]
  - MULTI-ORGAN FAILURE [None]
